FAERS Safety Report 25779272 (Version 1)
Quarter: 2025Q3

REPORT INFORMATION
  Report Type: Report from Study
  Country: GB (occurrence: GB)
  Receive Date: 20250909
  Receipt Date: 20250909
  Transmission Date: 20251020
  Serious: Yes (Other)
  Sender: ELI LILLY AND COMPANY
  Company Number: GB-ELI_LILLY_AND_COMPANY-GB202509004245

PATIENT
  Age: 58 Year
  Sex: Female

DRUGS (3)
  1. BARICITINIB [Suspect]
     Active Substance: BARICITINIB
     Indication: Rheumatoid arthritis
     Dosage: 4 MG, OD
     Route: 048
  2. BARICITINIB [Suspect]
     Active Substance: BARICITINIB
     Dosage: 4 MG, OD
     Route: 048
     Dates: start: 20250704
  3. PREDNISOLONE [Concomitant]
     Active Substance: PREDNISOLONE
     Indication: Product used for unknown indication
     Route: 065

REACTIONS (1)
  - Neoplasm malignant [Unknown]
